FAERS Safety Report 8428544-6 (Version None)
Quarter: 2012Q2

REPORT INFORMATION
  Report Type: 
  Country: None (occurrence: None)
  Receive Date: 20120606
  Receipt Date: 20120606
  Transmission Date: 20120825
  Serious: Yes (Other)
  Sender: FDA-Public Use
  Company Number: None

PATIENT
  Age: 58 Year
  Sex: Female
  Weight: 65.7716 kg

DRUGS (1)
  1. ABILIFY [Suspect]
     Indication: BIPOLAR DISORDER
     Dosage: 1 PER DAY, PO
     Route: 048
     Dates: start: 20111227, end: 20120201

REACTIONS (13)
  - CONDITION AGGRAVATED [None]
  - BACK PAIN [None]
  - MORBID THOUGHTS [None]
  - STRESS [None]
  - MIDDLE INSOMNIA [None]
  - ANXIETY [None]
  - ACTIVITIES OF DAILY LIVING IMPAIRED [None]
  - ABDOMINAL PAIN [None]
  - PAIN IN EXTREMITY [None]
  - INITIAL INSOMNIA [None]
  - VISION BLURRED [None]
  - PAIN [None]
  - ALCOHOL USE [None]
